FAERS Safety Report 9724711 (Version 2)
Quarter: 2013Q4

REPORT INFORMATION
  Report Type: Spontaneous
  Country: US (occurrence: US)
  Receive Date: 20131202
  Receipt Date: 20131204
  Transmission Date: 20140711
  Serious: Yes (Other)
  Sender: FDA-Public Use
  Company Number: US-PERRIGO-13US012126

PATIENT
  Age: 78 Year
  Sex: Female
  Weight: 81.63 kg

DRUGS (7)
  1. ACETAMINOPHEN 500 MG 227 [Suspect]
     Indication: HEADACHE
     Dosage: 1000 MG, SINGLE
     Route: 048
     Dates: start: 20131119, end: 20131119
  2. ACETAMINOPHEN 500 MG 227 [Suspect]
     Dosage: 500 MG, PRN
     Route: 048
  3. MOTRIN [Suspect]
     Indication: HEADACHE
     Dosage: 1 TABLET, SINGLE
     Route: 048
     Dates: start: 20131119, end: 20131119
  4. EVISTA [Concomitant]
     Indication: BONE DENSITY DECREASED
     Dosage: UNK, UNK
     Route: 048
  5. OMEPRAZOLE [Concomitant]
     Indication: ULCER HAEMORRHAGE
     Dosage: UNK, UNK
     Route: 048
  6. FLECAINIDE [Concomitant]
     Indication: ARRHYTHMIA
     Dosage: UNK, UNK
     Route: 048
  7. METOPROLOL [Concomitant]
     Indication: ARRHYTHMIA
     Dosage: UNK, UNK
     Route: 048

REACTIONS (14)
  - Hypersensitivity [Recovered/Resolved]
  - Drug interaction [Recovered/Resolved]
  - Dyspnoea [Recovered/Resolved]
  - Blood pressure decreased [Recovered/Resolved]
  - Hypoaesthesia [Recovered/Resolved]
  - Paraesthesia [Recovered/Resolved]
  - Coordination abnormal [Recovered/Resolved]
  - Memory impairment [Not Recovered/Not Resolved]
  - Dry mouth [Recovered/Resolved]
  - Throat irritation [Recovered/Resolved]
  - Speech disorder [Recovered/Resolved]
  - Feeling cold [Recovered/Resolved]
  - Cold sweat [Recovered/Resolved]
  - Drug ineffective [Unknown]
